FAERS Safety Report 16359355 (Version 7)
Quarter: 2025Q4

REPORT INFORMATION
  Report Type: Report from Study
  Country: JP (occurrence: JP)
  Receive Date: 20190528
  Receipt Date: 20251224
  Transmission Date: 20260117
  Serious: Yes (Hospitalization, Other)
  Sender: ALEXION PHARMACEUTICALS
  Company Number: JP-ALEXION PHARMACEUTICALS INC.-A201812692

PATIENT
  Age: 55 Year
  Sex: Male
  Weight: 92 kg

DRUGS (11)
  1. SOLIRIS [Suspect]
     Active Substance: ECULIZUMAB
     Indication: Myasthenia gravis
     Dosage: 900 MILLIGRAM, QW
     Dates: start: 20180420
  2. SOLIRIS [Suspect]
     Active Substance: ECULIZUMAB
     Dosage: 1200 MILLIGRAM, Q2W
     Dates: start: 20180518
  3. PREDNISOLONE [Suspect]
     Active Substance: PREDNISOLONE
     Indication: Myasthenia gravis
     Dosage: 25 MILLIGRAM, QD
     Route: 061
     Dates: start: 20180420
  4. PREDNISOLONE [Suspect]
     Active Substance: PREDNISOLONE
     Dosage: 20 MILLIGRAM, QD
     Route: 061
     Dates: start: 20180615
  5. PREDNISOLONE [Suspect]
     Active Substance: PREDNISOLONE
     Dosage: 15 MILLIGRAM, QD
     Route: 061
     Dates: start: 20180907
  6. PREDNISOLONE [Suspect]
     Active Substance: PREDNISOLONE
     Dosage: 12.5 MILLIGRAM, QD
     Route: 061
     Dates: start: 20181005, end: 20190124
  7. PREDNISOLONE [Suspect]
     Active Substance: PREDNISOLONE
     Dosage: 10 MILLIGRAM, QD
     Route: 061
     Dates: start: 20190125, end: 20190221
  8. PREDNISOLONE [Suspect]
     Active Substance: PREDNISOLONE
     Dosage: 8 MILLIGRAM, QD
     Route: 061
     Dates: start: 20190222, end: 20190321
  9. PREDNISOLONE [Suspect]
     Active Substance: PREDNISOLONE
     Dosage: 7.5 MILLIGRAM, QD
     Route: 061
     Dates: start: 20190322, end: 20190418
  10. PREDNISOLONE [Suspect]
     Active Substance: PREDNISOLONE
     Dosage: 7 MILLIGRAM, QD
     Route: 061
     Dates: start: 20190419
  11. PROGRAF [Suspect]
     Active Substance: TACROLIMUS
     Indication: Myasthenia gravis
     Dosage: 3 MILLIGRAM, QD
     Route: 061

REACTIONS (4)
  - Cholecystitis [Recovered/Resolved]
  - Gastrointestinal disorder [Recovered/Resolved]
  - Conjunctival haemorrhage [Recovered/Resolved]
  - Tinnitus [Recovered/Resolved]

NARRATIVE: CASE EVENT DATE: 20180518
